FAERS Safety Report 23079242 (Version 1)
Quarter: 2023Q4

REPORT INFORMATION
  Report Type: Report from Study
  Country: US (occurrence: US)
  Receive Date: 20231018
  Receipt Date: 20231018
  Transmission Date: 20240110
  Serious: Yes (Hospitalization, Other)
  Sender: FDA-Public Use
  Company Number: US-ALXN-A202214961AA

PATIENT
  Sex: Female

DRUGS (1)
  1. SOLIRIS [Suspect]
     Active Substance: ECULIZUMAB
     Indication: Neuromyelitis optica spectrum disorder
     Dosage: UNK
     Route: 065
     Dates: start: 202208

REACTIONS (15)
  - Idiopathic intracranial hypertension [Unknown]
  - Brain oedema [Unknown]
  - Neuromyelitis optica spectrum disorder [Unknown]
  - Eye pain [Unknown]
  - Balance disorder [Unknown]
  - Spinal pain [Unknown]
  - Blood test abnormal [Unknown]
  - Meningitis aseptic [Unknown]
  - Papilloedema [Unknown]
  - Visual impairment [Unknown]
  - Vomiting [Unknown]
  - Asthenia [Unknown]
  - Headache [Unknown]
  - Neuritis [Unknown]
  - Epistaxis [Unknown]

NARRATIVE: CASE EVENT DATE: 20221126
